FAERS Safety Report 8220359-7 (Version None)
Quarter: 2012Q1

REPORT INFORMATION
  Report Type: 
  Country: None (occurrence: None)
  Receive Date: 20120320
  Receipt Date: 20120315
  Transmission Date: 20120608
  Serious: Yes (Hospitalization)
  Sender: FDA-Public Use
  Company Number: US-AMGEN-USASP2012017100

PATIENT
  Sex: Male

DRUGS (1)
  1. XGEVA [Suspect]
     Indication: PROPHYLAXIS

REACTIONS (2)
  - CONVULSION [None]
  - HYPOCALCAEMIA [None]
